FAERS Safety Report 4479439-4 (Version None)
Quarter: 2004Q4

REPORT INFORMATION
  Report Type: 
  Country: None (occurrence: None)
  Receive Date: 20041015
  Receipt Date: 20041005
  Transmission Date: 20050328
  Serious: Yes (Hospitalization, Other)
  Sender: FDA-Public Use
  Company Number: HQWYE608807OCT04

PATIENT
  Age: 17 Year
  Sex: Male

DRUGS (3)
  1. EFFEXOR XR [Suspect]
     Dosage: SEE IMAGE
     Dates: start: 20030901, end: 20040901
  2. EFFEXOR XR [Suspect]
     Dosage: SEE IMAGE
     Dates: start: 20040901, end: 20041001
  3. DOXEPIN (DOXEPIN) [Concomitant]

REACTIONS (1)
  - CONVULSION [None]
